FAERS Safety Report 7943605-3 (Version None)
Quarter: 2011Q4

REPORT INFORMATION
  Report Type: 
  Country: None (occurrence: None)
  Receive Date: 20111128
  Receipt Date: 20111125
  Transmission Date: 20120403
  Serious: Yes (Other)
  Sender: FDA-Public Use
  Company Number: US-CEPHALON-CEPH-1538-99-5133

PATIENT
  Sex: Male
  Weight: 66 kg

DRUGS (4)
  1. PROVIGIL [Suspect]
     Indication: NARCOLEPSY
     Route: 048
     Dates: start: 19990201, end: 19990617
  2. BUSPAR [Concomitant]
     Indication: ANXIETY
     Dates: start: 19971201
  3. COLESTID [Concomitant]
     Indication: BLOOD CHOLESTEROL INCREASED
     Dates: start: 19971201
  4. ANAFRANIL [Concomitant]
     Indication: OBSESSIVE-COMPULSIVE DISORDER
     Route: 048
     Dates: start: 19971201

REACTIONS (1)
  - CONVULSION [None]
